FAERS Safety Report 9141052 (Version 1)
Quarter: 2013Q1

REPORT INFORMATION
  Report Type: Spontaneous
  Country: TH (occurrence: TH)
  Receive Date: 20130305
  Receipt Date: 20130305
  Transmission Date: 20140127
  Serious: Yes (Death)
  Sender: FDA-Public Use
  Company Number: TH-BAXTER-2013BAX007298

PATIENT
  Age: 70 Year
  Sex: Male

DRUGS (1)
  1. DIANEAL PD4 LOW CALCIUM WITH 1.5% DEXTROSE [Suspect]
     Indication: RENAL FAILURE CHRONIC
     Route: 033
     Dates: start: 20120125

REACTIONS (1)
  - Death [Fatal]
